FAERS Safety Report 25759817 (Version 1)
Quarter: 2025Q3

REPORT INFORMATION
  Report Type: Spontaneous
  Country: EU (occurrence: EU)
  Receive Date: 20250904
  Receipt Date: 20250904
  Transmission Date: 20251020
  Serious: Yes (Other)
  Sender: EMD SERONO INC
  Company Number: None

PATIENT
  Age: 69 Year
  Sex: Male

DRUGS (7)
  1. METFORMIN [Suspect]
     Active Substance: METFORMIN HYDROCHLORIDE
     Indication: Type 2 diabetes mellitus
     Dates: start: 20160229, end: 20200127
  2. XIGDUO XR [Suspect]
     Active Substance: DAPAGLIFLOZIN PROPANEDIOL\METFORMIN HYDROCHLORIDE
     Indication: Type 2 diabetes mellitus
     Dosage: 5 MG/1000 MG FILM-COATED TABLETS, 56 TABLETS?1 TABLET/12 HOURS
     Dates: start: 20230421, end: 20241204
  3. DAPAGLIFLOZIN PROPANEDIOL\METFORMIN HYDROCHLORIDE [Suspect]
     Active Substance: DAPAGLIFLOZIN PROPANEDIOL\METFORMIN HYDROCHLORIDE
     Indication: Type 2 diabetes mellitus
     Dosage: 5 MG/1,000 MG TABLET
     Dates: start: 20200127, end: 20210415
  4. LINAGLIPTIN\METFORMIN HYDROCHLORIDE [Suspect]
     Active Substance: LINAGLIPTIN\METFORMIN HYDROCHLORIDE
     Indication: Type 2 diabetes mellitus
     Dosage: 2.5 MG/850 MG TABLET
     Dates: start: 20210415, end: 20230421
  5. PIRFENIDONE KERN PHARMA [Concomitant]
     Indication: Idiopathic pulmonary fibrosis
     Dosage: 84 TABLETS (PVC/AL)?EVERY 8 HOURS
     Dates: start: 20240314
  6. PANTOPRAZOLE SODIUM [Concomitant]
     Active Substance: PANTOPRAZOLE SODIUM
     Indication: Gastrooesophageal reflux disease
  7. CARVEDILOL KERN PHARMA [Concomitant]
     Indication: Product used for unknown indication
     Dosage: 28 TABLETS?12.5 MG/12H
     Dates: start: 20120323

REACTIONS (2)
  - Eosinophilia [Recovered/Resolved]
  - Diarrhoea [Recovered/Resolved]

NARRATIVE: CASE EVENT DATE: 20200101
